FAERS Safety Report 5147757-2 (Version None)
Quarter: 2006Q4

REPORT INFORMATION
  Report Type: 
  Country: None (occurrence: None)
  Receive Date: 20061106
  Receipt Date: 20061030
  Transmission Date: 20070319
  Serious: Yes (Hospitalization)
  Sender: FDA-Public Use
  Company Number: GXKR2006GB06778

PATIENT
  Age: 80 Year
  Sex: Male

DRUGS (17)
  1. WARFARIN SODIUM [Suspect]
     Indication: ATRIAL FIBRILLATION
     Dates: end: 20060722
  2. RISEDRONATE SODIUM [Suspect]
     Dosage: 35 MG, QW, ORAL
     Route: 048
     Dates: end: 20060722
  3. PREDNISOLONE [Suspect]
     Dosage: 15 MG, QD
     Dates: end: 20060722
  4. ATORVASTATIN CALCIUM [Concomitant]
  5. BENDROFLUAZIDE (BENDROFLUMETHIAZIDE) [Concomitant]
  6. BUDESONIDE [Concomitant]
  7. CACIT/NET (CALCIUM CARBONATE) [Concomitant]
  8. CLARITHROMYCIN [Concomitant]
  9. CO-DYDRAMOL (DIHYDROCODEINE BITARTRATE, PARACETAMOL) [Concomitant]
  10. DIGOXIN [Concomitant]
  11. FERROUS SULPHATE (FERROUS SULFATE) [Concomitant]
  12. IPRATROPIUM BROMIDE [Concomitant]
  13. MOVICOL (MACROGOL, POTASSIUM CHLORIDE, SODIUM BICARBONATE, SODIUM CHLO [Concomitant]
  14. OMEPRAZOLE [Concomitant]
  15. SALBUTAMOL (SALBUTAMOL) [Concomitant]
  16. THEOPHYLLINE [Concomitant]
  17. XALATAN [Concomitant]

REACTIONS (3)
  - DRUG INTERACTION [None]
  - HAEMATEMESIS [None]
  - OESOPHAGEAL ULCER [None]
